FAERS Safety Report 10025097 (Version 1)
Quarter: 2014Q1

REPORT INFORMATION
  Report Type: Spontaneous
  Country: US (occurrence: None)
  Receive Date: 20140212
  Receipt Date: 20140212
  Transmission Date: 20141002
  Serious: Yes (Hospitalization)
  Sender: FDA-Public Use
  Company Number: 13-05092

PATIENT
  Age: 44 Year
  Sex: Female
  Weight: 127.01 kg

DRUGS (3)
  1. ALBUTEROL SULFATE [Suspect]
     Indication: ASTHMA
     Dosage: 1 VIAL QID PRN 054
  2. GLUCOPHAGE (METFORMIN) [Concomitant]
  3. COREG (CARVEDILOL) [Concomitant]

REACTIONS (6)
  - Drug ineffective [None]
  - Hypertension [None]
  - Bronchospasm [None]
  - Sputum discoloured [None]
  - Chest discomfort [None]
  - Lung infection pseudomonal [None]
